FAERS Safety Report 18227738 (Version 1)
Quarter: 2020Q3

REPORT INFORMATION
  Report Type: Spontaneous
  Country: AF (occurrence: AF)
  Receive Date: 20200903
  Receipt Date: 20200903
  Transmission Date: 20201103
  Serious: Yes (Hospitalization)
  Sender: FDA-Public Use
  Company Number: None

PATIENT
  Age: 82 Year
  Sex: Female
  Weight: 47.4 kg

DRUGS (1)
  1. RITUXAN [Suspect]
     Active Substance: RITUXIMAB
     Indication: LYMPHOMA
     Dosage: ?          OTHER FREQUENCY:WEEKLY;?
     Route: 041
     Dates: start: 20200824

REACTIONS (11)
  - Infusion related reaction [None]
  - Burning sensation [None]
  - Restlessness [None]
  - Throat irritation [None]
  - Vomiting [None]
  - Heart rate increased [None]
  - Nausea [None]
  - Cough [None]
  - Dyspnoea [None]
  - Back pain [None]
  - Screaming [None]

NARRATIVE: CASE EVENT DATE: 20200824
